FAERS Safety Report 17854913 (Version 1)
Quarter: 2020Q2

REPORT INFORMATION
  Report Type: Spontaneous
  Country: US (occurrence: US)
  Receive Date: 20200602
  Receipt Date: 20200602
  Transmission Date: 20200714
  Serious: No
  Sender: FDA-Public Use
  Company Number: None

PATIENT
  Age: 50 Year
  Sex: Female

DRUGS (1)
  1. OTEZLA [Suspect]
     Active Substance: APREMILAST
     Indication: PSORIASIS
     Route: 048
     Dates: start: 202002, end: 202005

REACTIONS (4)
  - Headache [None]
  - Diarrhoea [None]
  - Vomiting [None]
  - Hypoaesthesia [None]

NARRATIVE: CASE EVENT DATE: 202004
